FAERS Safety Report 8146928-0 (Version None)
Quarter: 2012Q1

REPORT INFORMATION
  Report Type: 
  Country: None (occurrence: None)
  Receive Date: 20120217
  Receipt Date: 20120210
  Transmission Date: 20120608
  Serious: Yes (Life-Threatening, Other)
  Sender: FDA-Public Use
  Company Number: GB-ABBOTT-12P-167-0901267-00

PATIENT
  Sex: Female
  Weight: 87 kg

DRUGS (4)
  1. ACETAMINOPHEN AND CODEINE PHOSPHATE [Concomitant]
     Indication: PSORIATIC ARTHROPATHY
     Dosage: 2 IN 1 DAY, 30/500
     Route: 048
     Dates: start: 20060127
  2. HUMIRA [Suspect]
     Dates: start: 20120206
  3. ARCOXIA [Concomitant]
     Indication: PSORIATIC ARTHROPATHY
     Route: 048
     Dates: start: 20101216, end: 20120120
  4. HUMIRA [Suspect]
     Indication: PSORIATIC ARTHROPATHY
     Route: 058
     Dates: start: 20080204, end: 20120120

REACTIONS (5)
  - COAGULOPATHY [None]
  - PLEURITIC PAIN [None]
  - PULMONARY EMBOLISM [None]
  - TENDON RUPTURE [None]
  - DEEP VEIN THROMBOSIS [None]
